FAERS Safety Report 10460762 (Version 2)
Quarter: 2014Q4

REPORT INFORMATION
  Report Type: Report from Study
  Country: ZA (occurrence: ZA)
  Receive Date: 20140918
  Receipt Date: 20141113
  Transmission Date: 20150528
  Serious: Yes (Congenital Anomaly)
  Sender: FDA-Public Use
  Company Number: ZA-AUROBINDO-AUR-APL-2014-09737

PATIENT
  Sex: Female
  Weight: 3.8 kg

DRUGS (6)
  1. ALUVIA [Suspect]
     Active Substance: LOPINAVIR\RITONAVIR
     Indication: HIV INFECTION
     Dosage: 4 DF, UNK
     Route: 064
     Dates: end: 20140805
  2. KALETRA [Suspect]
     Active Substance: LOPINAVIR\RITONAVIR
     Indication: HIV INFECTION
     Dosage: 4 DF, UNK
     Route: 064
     Dates: end: 20140805
  3. KALETRA [Suspect]
     Active Substance: LOPINAVIR\RITONAVIR
     Dosage: 8 DF, UNK
     Route: 064
     Dates: end: 20140805
  4. LAMIVUDINE. [Suspect]
     Active Substance: LAMIVUDINE
     Indication: HIV INFECTION
     Dosage: 300 MG, DAILY
     Route: 064
  5. ALUVIA [Suspect]
     Active Substance: LOPINAVIR\RITONAVIR
     Dosage: 6 DF, UNK
     Route: 064
  6. TENOFOVIR DISOPROXIL FUMARATE 300MG [Suspect]
     Active Substance: TENOFOVIR DISOPROXIL FUMARATE
     Indication: HIV INFECTION
     Dosage: 300 MG, DAILY
     Route: 064

REACTIONS (3)
  - Foetal exposure during pregnancy [Unknown]
  - Foetal cardiac disorder [Recovered/Resolved]
  - Cafe au lait spots [Unknown]
